FAERS Safety Report 8304878 (Version 4)
Quarter: 2014Q1

REPORT INFORMATION
  Report Type: Report from Study
  Country: BG (occurrence: BG)
  Receive Date: 20111221
  Receipt Date: 20140128
  Transmission Date: 20141002
  Serious: Yes (Hospitalization)
  Sender: FDA-Public Use
  Company Number: BG-GLAXOSMITHKLINE-Z0013277A

PATIENT
  Age: 62 Year
  Sex: Male
  Weight: 83 kg

DRUGS (3)
  1. OFATUMUMAB [Suspect]
     Indication: CHRONIC LYMPHOCYTIC LEUKAEMIA
     Route: 042
     Dates: start: 20110713, end: 20111102
  2. FLUDARABINE [Suspect]
     Indication: CHRONIC LYMPHOCYTIC LEUKAEMIA
     Dosage: 25MGM2 CYCLIC
     Route: 042
     Dates: start: 20110713, end: 20111007
  3. CYCLOPHOSPHAMIDE [Suspect]
     Indication: CHRONIC LYMPHOCYTIC LEUKAEMIA
     Dosage: 250MGM2 CYCLIC
     Route: 042
     Dates: start: 20110713, end: 20111007

REACTIONS (2)
  - Hepatitis [Recovered/Resolved]
  - Diabetes mellitus [Not Recovered/Not Resolved]
